FAERS Safety Report 18538500 (Version 1)
Quarter: 2020Q4

REPORT INFORMATION
  Report Type: Spontaneous
  Country: JP (occurrence: JP)
  Receive Date: 20201124
  Receipt Date: 20201124
  Transmission Date: 20210114
  Serious: Yes (Hospitalization)
  Sender: FDA-Public Use
  Company Number: NVSJ2020JP012229

PATIENT
  Sex: Male

DRUGS (1)
  1. VOTRIENT [Suspect]
     Active Substance: PAZOPANIB HYDROCHLORIDE
     Indication: METASTATIC RENAL CELL CARCINOMA
     Dosage: 600 MG
     Route: 048
     Dates: start: 20181001, end: 20201106

REACTIONS (2)
  - Blood creatinine increased [Recovering/Resolving]
  - Red blood cell count increased [Unknown]

NARRATIVE: CASE EVENT DATE: 20201030
